FAERS Safety Report 8105854-3 (Version None)
Quarter: 2012Q1

REPORT INFORMATION
  Report Type: 
  Country: None (occurrence: None)
  Receive Date: 20120202
  Receipt Date: 20120123
  Transmission Date: 20120608
  Serious: Yes (Hospitalization)
  Sender: FDA-Public Use
  Company Number: US-BIOGENIDEC-2012BI002771

PATIENT
  Age: 46 Year
  Sex: Male

DRUGS (5)
  1. NEURONTIN [Concomitant]
     Indication: PRODUCT USED FOR UNKNOWN INDICATION
  2. VICODIN [Concomitant]
     Indication: PRODUCT USED FOR UNKNOWN INDICATION
  3. ULTRAM [Concomitant]
     Indication: PRODUCT USED FOR UNKNOWN INDICATION
  4. TYSABRI [Suspect]
     Indication: MULTIPLE SCLEROSIS
     Route: 042
     Dates: start: 20110727, end: 20110926
  5. TYSABRI [Suspect]
     Route: 042
     Dates: start: 20120111

REACTIONS (5)
  - IMMUNE RECONSTITUTION SYNDROME [None]
  - CENTRAL NERVOUS SYSTEM LESION [None]
  - BACK PAIN [None]
  - DEPRESSION [None]
  - MULTIPLE SCLEROSIS RELAPSE [None]
